FAERS Safety Report 11177654 (Version 4)
Quarter: 2016Q1

REPORT INFORMATION
  Report Type: Spontaneous
  Country: US (occurrence: US)
  Receive Date: 20150610
  Receipt Date: 20160120
  Transmission Date: 20160525
  Serious: No
  Sender: FDA-Public Use
  Company Number: US-PFIZER INC-2015189575

PATIENT
  Age: 63 Year
  Sex: Male

DRUGS (2)
  1. INLYTA [Suspect]
     Active Substance: AXITINIB
     Indication: RENAL CANCER METASTATIC
     Dosage: 5 MG, 2X/DAY
     Route: 048
     Dates: start: 20150506
  2. INLYTA [Suspect]
     Active Substance: AXITINIB
     Dosage: 3 MG, 2X/DAY (1 MG TABLET)
     Route: 048
     Dates: start: 201509

REACTIONS (5)
  - Back pain [Not Recovered/Not Resolved]
  - Abdominal discomfort [Unknown]
  - Arthralgia [Unknown]
  - Diarrhoea [Not Recovered/Not Resolved]
  - Pain in extremity [Unknown]

NARRATIVE: CASE EVENT DATE: 2015
